FAERS Safety Report 24793073 (Version 1)
Quarter: 2024Q4

REPORT INFORMATION
  Report Type: Spontaneous
  Country: US (occurrence: None)
  Receive Date: 20241230
  Receipt Date: 20241230
  Transmission Date: 20250115
  Serious: Yes (Hospitalization)
  Sender: Public
  Company Number: None

PATIENT
  Sex: Female

DRUGS (16)
  1. PHOSPHOLINE IODIDE OPHTHALMIC [Suspect]
     Active Substance: ECHOTHIOPHATE IODIDE
     Indication: Product used for unknown indication
     Dosage: OTHER QUANTITY : INSTILL 1 DROP INTO BOTH EYES ;?FREQUENCY : TWICE A DAY;?
     Route: 047
     Dates: start: 20230321
  2. SIMVASTATIN [Concomitant]
     Active Substance: SIMVASTATIN
  3. LOSARTAN POTASSIUM [Concomitant]
     Active Substance: LOSARTAN POTASSIUM
  4. AMLODIPINE [Concomitant]
     Active Substance: AMLODIPINE BESYLATE
  5. NATEGLINIDE [Concomitant]
     Active Substance: NATEGLINIDE
  6. BRINZOLAMIDE [Concomitant]
     Active Substance: BRINZOLAMIDE
  7. AZELASTINE [Concomitant]
     Active Substance: AZELASTINE
  8. LEVOTHYROXINE [Concomitant]
     Active Substance: LEVOTHYROXINE
  9. JANUMET XR [Concomitant]
     Active Substance: METFORMIN HYDROCHLORIDE\SITAGLIPTIN PHOSPHATE
  10. TRADJENTA [Concomitant]
     Active Substance: LINAGLIPTIN
  11. LANTUS SOLOS [Concomitant]
  12. METOPROL SUC [Concomitant]
  13. MONTELUKAST [Concomitant]
     Active Substance: MONTELUKAST SODIUM
  14. INSULIN GLAR [Concomitant]
  15. MEGESTROL [Concomitant]
     Active Substance: MEGESTROL
  16. PANTOPRAZOLE [Concomitant]
     Active Substance: PANTOPRAZOLE

REACTIONS (2)
  - Hospitalisation [None]
  - Therapy interrupted [None]
